FAERS Safety Report 5004065-8 (Version None)
Quarter: 2006Q2

REPORT INFORMATION
  Report Type: 
  Country: None (occurrence: None)
  Receive Date: 20060515
  Receipt Date: 20060515
  Transmission Date: 20061013
  Serious: Yes (Disabling, Other)
  Sender: FDA-Public Use
  Company Number: None

PATIENT
  Age: 65 Year
  Sex: Male
  Weight: 90.7194 kg

DRUGS (4)
  1. AMBIEN [Suspect]
     Indication: INSOMNIA
     Dosage: 10 MG   HS  PO
     Route: 048
     Dates: start: 19960710, end: 19961020
  2. AMBIEN [Suspect]
     Indication: RESTLESS LEGS SYNDROME
     Dosage: 10 MG   HS  PO
     Route: 048
     Dates: start: 19960710, end: 19961020
  3. AMBIEN [Suspect]
     Indication: INSOMNIA
     Dosage: 10 MG   HS  PO
     Route: 048
     Dates: start: 20000208, end: 20030410
  4. AMBIEN [Suspect]
     Indication: RESTLESS LEGS SYNDROME
     Dosage: 10 MG   HS  PO
     Route: 048
     Dates: start: 20000208, end: 20030410

REACTIONS (3)
  - ABNORMAL SLEEP-RELATED EVENT [None]
  - MEMORY IMPAIRMENT [None]
  - SLEEP WALKING [None]
